FAERS Safety Report 4278135-6 (Version None)
Quarter: 2004Q1

REPORT INFORMATION
  Report Type: 
  Country: None (occurrence: None)
  Receive Date: 20040121
  Receipt Date: 20040105
  Transmission Date: 20041129
  Serious: Yes (Other)
  Sender: FDA-Public Use
  Company Number: A03200200431

PATIENT
  Age: 50 Year
  Sex: Male

DRUGS (8)
  1. AMBIEN [Suspect]
     Dosage: 10 MG BID - ORAL
     Route: 048
     Dates: start: 20020501, end: 20020601
  2. VERAPAMIL HYDROCHLORIDE [Concomitant]
  3. VERAPAMIL [Concomitant]
  4. SERTRALINE HCL [Concomitant]
  5. ACETYLSALICYLIC ACID SRT [Concomitant]
  6. OMEPRAZOLE [Concomitant]
  7. ALPRAZOLAM [Concomitant]
  8. ATORVASTATIN [Concomitant]

REACTIONS (6)
  - BLOOD CHOLESTEROL INCREASED [None]
  - DEPRESSION [None]
  - LOW DENSITY LIPOPROTEIN INCREASED [None]
  - MEDICATION ERROR [None]
  - TRANSIENT ISCHAEMIC ATTACK [None]
  - VERTIGO [None]
